FAERS Safety Report 9668802 (Version 2)
Quarter: 2014Q2

REPORT INFORMATION
  Report Type: Report from Study
  Country: DE (occurrence: DE)
  Receive Date: 20131105
  Receipt Date: 20140416
  Transmission Date: 20141212
  Serious: Yes (Death)
  Sender: FDA-Public Use
  Company Number: DE-ABBVIE-13P-062-1166159-00

PATIENT
  Age: 75 Year
  Sex: Male
  Weight: 110 kg

DRUGS (5)
  1. LEUPRORELIN DEPOT [Suspect]
     Indication: PROSTATE CANCER
     Dosage: REGIMEN #1
     Route: 058
     Dates: start: 20120713, end: 20130726
  2. LEUPRORELIN DEPOT [Suspect]
     Indication: PROSTATIC SPECIFIC ANTIGEN INCREASED
  3. BICALUTAMID [Concomitant]
     Indication: PRODUCT USED FOR UNKNOWN INDICATION
     Dates: start: 20130425
  4. TAMSULOSIN [Concomitant]
     Indication: PRODUCT USED FOR UNKNOWN INDICATION
     Route: 048
  5. ACETYLSALICYLIC ACID [Concomitant]
     Indication: PRODUCT USED FOR UNKNOWN INDICATION

REACTIONS (1)
  - Death [Fatal]
